FAERS Safety Report 19836071 (Version 1)
Quarter: 2021Q3

REPORT INFORMATION
  Report Type: Spontaneous
  Country: US (occurrence: US)
  Receive Date: 20210916
  Receipt Date: 20210916
  Transmission Date: 20211014
  Serious: Yes (Hospitalization, Other)
  Sender: FDA-Public Use
  Company Number: US-HIKMA PHARMACEUTICALS USA INC.-US-H14001-21-55433

PATIENT
  Age: 56 Year
  Sex: Male

DRUGS (1)
  1. PREDNISONE. [Suspect]
     Active Substance: PREDNISONE
     Indication: POLYARTHRITIS
     Dosage: TAPER
     Route: 065

REACTIONS (7)
  - Meningitis gonococcal [Recovering/Resolving]
  - Condition aggravated [Recovered/Resolved]
  - Encephalopathy [Recovering/Resolving]
  - Arthritis gonococcal [Recovered/Resolved]
  - Rash [Recovered/Resolved]
  - Hydrocephalus [Recovering/Resolving]
  - Hyponatraemia [Recovered/Resolved]
